FAERS Safety Report 23592135 (Version 1)
Quarter: 2024Q1

REPORT INFORMATION
  Report Type: Spontaneous
  Country: US (occurrence: None)
  Receive Date: 20240302
  Receipt Date: 20240302
  Transmission Date: 20240410
  Serious: No
  Sender: FDA-Public Use
  Company Number: None

PATIENT
  Age: 52 Year
  Sex: Female
  Weight: 92.25 kg

DRUGS (4)
  1. ZEPBOUND [Suspect]
     Active Substance: TIRZEPATIDE
     Indication: Weight decreased
     Dosage: OTHER QUANTITY : 1 INJECTION(S);?OTHER FREQUENCY : ONCE PER WEEK;?
     Route: 058
     Dates: start: 20240223
  2. Valsartan - HCL [Concomitant]
  3. AZATHIOPRINE [Concomitant]
     Active Substance: AZATHIOPRINE
  4. mineral/vitamin [Concomitant]

REACTIONS (3)
  - Injection site rash [None]
  - Injection site pruritus [None]
  - Injection site reaction [None]

NARRATIVE: CASE EVENT DATE: 20240302
